FAERS Safety Report 5417997-3 (Version None)
Quarter: 2007Q3

REPORT INFORMATION
  Report Type: 
  Country: None (occurrence: None)
  Receive Date: 20070817
  Receipt Date: 20070709
  Transmission Date: 20080115
  Serious: No
  Sender: FDA-Public Use
  Company Number: A0658973A

PATIENT
  Sex: Male

DRUGS (1)
  1. VERAMYST [Suspect]
     Indication: DRUG USE FOR UNKNOWN INDICATION
     Route: 045
     Dates: start: 20070606

REACTIONS (18)
  - ADVERSE EVENT [None]
  - ASTHENIA [None]
  - AURICULAR SWELLING [None]
  - EAR PAIN [None]
  - EYE PAIN [None]
  - FACIAL PAIN [None]
  - HEADACHE [None]
  - HYPOACUSIS [None]
  - IMMOBILE [None]
  - LOCAL SWELLING [None]
  - MALAISE [None]
  - NASAL DISCOMFORT [None]
  - OCULAR HYPERAEMIA [None]
  - PAIN OF SKIN [None]
  - PRURITUS [None]
  - RASH ERYTHEMATOUS [None]
  - SENSORY DISTURBANCE [None]
  - SLEEP DISORDER [None]
